FAERS Safety Report 4559950-8 (Version None)
Quarter: 2005Q1

REPORT INFORMATION
  Report Type: 
  Country: None (occurrence: None)
  Receive Date: 20050120
  Receipt Date: 20050120
  Transmission Date: 20050727
  Serious: Yes (Hospitalization)
  Sender: FDA-Public Use
  Company Number: None

PATIENT
  Age: 52 Year
  Sex: Male
  Weight: 110 kg

DRUGS (4)
  1. ASPIRIN [Suspect]
     Indication: HEADACHE
     Dosage: PRN    RECENT INCREASE
  2. ASPIRIN [Suspect]
     Dosage: 325MG
  3. CAPTOPRIL [Concomitant]
  4. GLYBURIDE [Concomitant]

REACTIONS (4)
  - ANAEMIA [None]
  - DIZZINESS [None]
  - MELAENA [None]
  - UPPER GASTROINTESTINAL HAEMORRHAGE [None]
